FAERS Safety Report 13353384 (Version 1)
Quarter: 2017Q1

REPORT INFORMATION
  Report Type: Spontaneous
  Country: US (occurrence: US)
  Receive Date: 20170321
  Receipt Date: 20170321
  Transmission Date: 20170429
  Serious: Yes (Life-Threatening, Hospitalization)
  Sender: FDA-Public Use
  Company Number: US-009507513-1703USA008346

PATIENT
  Age: 65 Year
  Sex: Male
  Weight: 148.3 kg

DRUGS (10)
  1. MARINOL [Concomitant]
     Active Substance: DRONABINOL
  2. ZYPREXA [Concomitant]
     Active Substance: OLANZAPINE
  3. ZYLOPRIM [Concomitant]
     Active Substance: ALLOPURINOL
  4. ATIVAN [Concomitant]
     Active Substance: LORAZEPAM
  5. CELEXA [Concomitant]
     Active Substance: CITALOPRAM HYDROBROMIDE
  6. ZOFRAN [Concomitant]
     Active Substance: ONDANSETRON HYDROCHLORIDE
  7. KEYTRUDA [Suspect]
     Active Substance: PEMBROLIZUMAB
     Indication: MESOTHELIOMA
     Dosage: UNK
     Route: 041
     Dates: start: 20150923, end: 20160622
  8. MELATONIN [Concomitant]
     Active Substance: MELATONIN
  9. PRILOSEC [Concomitant]
     Active Substance: OMEPRAZOLE MAGNESIUM
  10. COMPAZINE [Concomitant]
     Active Substance: PROCHLORPERAZINE MALEATE

REACTIONS (2)
  - Anaemia [Not Recovered/Not Resolved]
  - Bone marrow failure [Not Recovered/Not Resolved]

NARRATIVE: CASE EVENT DATE: 20160712
